FAERS Safety Report 9668418 (Version 2)
Quarter: 2014Q1

REPORT INFORMATION
  Report Type: Spontaneous
  Country: SE (occurrence: SE)
  Receive Date: 20131105
  Receipt Date: 20140220
  Transmission Date: 20141002
  Serious: Yes (Other)
  Sender: FDA-Public Use
  Company Number: SE-ROCHE-1297797

PATIENT
  Age: 13 Year
  Sex: Male

DRUGS (4)
  1. MABTHERA [Suspect]
     Indication: FOCAL SEGMENTAL GLOMERULOSCLEROSIS
     Route: 042
     Dates: start: 20130820, end: 20130903
  2. OMEPRAZOL [Concomitant]
     Route: 065
     Dates: start: 20130508
  3. SANDIMMUN NEORAL [Concomitant]
     Route: 065
     Dates: start: 20130718
  4. NAPROXEN [Concomitant]
     Route: 065

REACTIONS (2)
  - Throat irritation [Recovered/Resolved]
  - Dyspnoea [Recovered/Resolved]
